FAERS Safety Report 6038621-5 (Version None)
Quarter: 2009Q1

REPORT INFORMATION
  Report Type: 
  Country: None (occurrence: None)
  Receive Date: 20090113
  Receipt Date: 20081030
  Transmission Date: 20090719
  Serious: No
  Sender: FDA-Public Use
  Company Number: 2008BM000210

PATIENT
  Sex: Female
  Weight: 90.7 kg

DRUGS (5)
  1. KUVAN [Suspect]
     Indication: PHENYLKETONURIA
     Dosage: 1800 MG;QD;PO
     Route: 048
     Dates: start: 20081108
  2. REQUIP [Concomitant]
  3. DETROL LA [Concomitant]
  4. ZANTAC [Concomitant]
  5. ALBUTEROL [Concomitant]

REACTIONS (1)
  - DRUG INEFFECTIVE [None]
